FAERS Safety Report 5317635-4 (Version None)
Quarter: 2007Q2

REPORT INFORMATION
  Report Type: 
  Country: None (occurrence: None)
  Receive Date: 20070507
  Receipt Date: 20070425
  Transmission Date: 20071010
  Serious: Yes (Hospitalization, Other)
  Sender: FDA-Public Use
  Company Number: PHEH2007US05388

PATIENT
  Age: 53 Year
  Sex: Female

DRUGS (4)
  1. ZELNORM [Suspect]
     Dosage: 6 MG, BID
     Dates: start: 20050101, end: 20060101
  2. TOPAMAX [Concomitant]
     Indication: CONVULSION
  3. PREVACID [Concomitant]
     Indication: ABDOMINAL PAIN UPPER
  4. HYDROCHLOROTHIAZIDE [Concomitant]

REACTIONS (5)
  - CHEST PAIN [None]
  - COUGH [None]
  - HEART RATE INCREASED [None]
  - MEMORY IMPAIRMENT [None]
  - NASOPHARYNGITIS [None]
